FAERS Safety Report 20301608 (Version 3)
Quarter: 2022Q2

REPORT INFORMATION
  Report Type: Spontaneous
  Country: IN (occurrence: IN)
  Receive Date: 20220105
  Receipt Date: 20220602
  Transmission Date: 20220720
  Serious: Yes (Death)
  Sender: FDA-Public Use
  Company Number: IN-PFIZER INC-202200010619

PATIENT
  Age: 43 Year
  Sex: Male

DRUGS (1)
  1. CRIZOTINIB [Suspect]
     Active Substance: CRIZOTINIB
     Dosage: UNK
     Route: 048
     Dates: end: 20211109

REACTIONS (1)
  - Death [Fatal]

NARRATIVE: CASE EVENT DATE: 20211109
